FAERS Safety Report 16205460 (Version 1)
Quarter: 2019Q2

REPORT INFORMATION
  Report Type: Spontaneous
  Country: US (occurrence: US)
  Receive Date: 20190417
  Receipt Date: 20190417
  Transmission Date: 20190711
  Serious: Yes (Other)
  Sender: FDA-Public Use
  Company Number: US-PFIZER INC-2019151921

PATIENT
  Age: 28 Year
  Sex: Female
  Weight: 61.23 kg

DRUGS (2)
  1. PRENATAL VITAMINS [Concomitant]
     Active Substance: VITAMINS
     Dosage: 2 DF, 1X/DAY (2 CHEWABLE TABLETS TAKEN BY MOUTH EVERY MORNING)
     Route: 048
     Dates: start: 20190101
  2. ALAVERT ALLERGY [Suspect]
     Active Substance: LORATADINE
     Indication: HYPERSENSITIVITY
     Dosage: 10 MG, DAILY
     Route: 048
     Dates: start: 20190401, end: 20190401

REACTIONS (3)
  - Acne cystic [Not Recovered/Not Resolved]
  - Reaction to excipient [Not Recovered/Not Resolved]
  - Gastrointestinal disorder [Recovering/Resolving]

NARRATIVE: CASE EVENT DATE: 20190401
